FAERS Safety Report 4711502-2 (Version None)
Quarter: 2005Q3

REPORT INFORMATION
  Report Type: 
  Country: None (occurrence: None)
  Receive Date: 20050711
  Receipt Date: 20050705
  Transmission Date: 20060218
  Serious: Yes (Death, Hospitalization, Other)
  Sender: FDA-Public Use
  Company Number: 2005-BP-09882RO

PATIENT
  Age: 79 Year
  Sex: Female
  Weight: 81.8 kg

DRUGS (14)
  1. PREDNISONE TAB [Suspect]
     Indication: METASTASES TO CENTRAL NERVOUS SYSTEM
     Dosage: 20 MG QD ORAL
     Route: 048
  2. TEMODAR [Suspect]
     Indication: METASTASES TO CENTRAL NERVOUS SYSTEM
     Dosage: 75 MG M^2 QD ORAL
     Route: 048
     Dates: start: 20050317, end: 20050404
  3. DECADRON [Suspect]
     Indication: METASTASES TO CENTRAL NERVOUS SYSTEM
     Dosage: 4 MG QD
  4. ATROVENT [Suspect]
     Indication: PNEUMONIA
  5. ADVAIR DISKUS 100/50 [Concomitant]
  6. CARDIZEM [Concomitant]
  7. PAXIL [Concomitant]
  8. K-LYTE (POTASSIUM CHLORIDE) [Concomitant]
  9. PROTONIX [Concomitant]
  10. VITRON-C (VITRON-C) [Concomitant]
  11. TYLENOL W/CODEINE NO. 3 (PANADEINE CO) [Concomitant]
  12. AMBIEN [Concomitant]
  13. TYLENOL [Concomitant]
  14. PHENERGAN [Concomitant]

REACTIONS (17)
  - AZOTAEMIA [None]
  - BLOOD CHOLESTEROL INCREASED [None]
  - BLOOD TRIGLYCERIDES INCREASED [None]
  - DEEP VEIN THROMBOSIS [None]
  - DEHYDRATION [None]
  - DIABETES MELLITUS INADEQUATE CONTROL [None]
  - DIZZINESS [None]
  - DYSLIPIDAEMIA [None]
  - DYSSTASIA [None]
  - FATIGUE [None]
  - HAEMATOCHEZIA [None]
  - LETHARGY [None]
  - LOW DENSITY LIPOPROTEIN INCREASED [None]
  - MENTAL STATUS CHANGES [None]
  - ORAL CANDIDIASIS [None]
  - PNEUMONIA STAPHYLOCOCCAL [None]
  - REFUSAL OF TREATMENT BY RELATIVE [None]
